FAERS Safety Report 4780076-2 (Version None)
Quarter: 2005Q3

REPORT INFORMATION
  Report Type: 
  Country: None (occurrence: None)
  Receive Date: 20050914
  Receipt Date: 20050427
  Transmission Date: 20060218
  Serious: Yes (Hospitalization)
  Sender: FDA-Public Use
  Company Number: 163-20785-05050009

PATIENT
  Age: 53 Year
  Sex: Male

DRUGS (14)
  1. THALOMID [Suspect]
     Indication: MULTIPLE MYELOMA
     Dosage: 50 MG, QHS, ORAL
     Route: 048
     Dates: start: 20040909
  2. CYCLOPHOSPHAMIDE [Suspect]
     Indication: MULTIPLE MYELOMA
     Dates: end: 20040325
  3. ADRIAMYCIN PFS [Suspect]
     Indication: MULTIPLE MYELOMA
     Dates: end: 20040325
  4. DEXAMETHASONE [Suspect]
     Indication: MULTIPLE MYELOMA
     Dates: end: 20040325
  5. MELPHALAN (MELPHALAN) (UNKNOWN) [Suspect]
     Indication: MULTIPLE MYELOMA
     Dosage: 200 MG/M2
     Dates: start: 20040528
  6. SYNTHROID [Concomitant]
  7. FOLIC ACID [Concomitant]
  8. ACYCLOVIR [Concomitant]
  9. METOPROLOL [Concomitant]
  10. VITAMIN B6 [Concomitant]
  11. AREDIA [Concomitant]
  12. PROCRIT [Concomitant]
  13. TEQUIN [Concomitant]
  14. ARANESP [Concomitant]

REACTIONS (1)
  - SEPSIS [None]
